FAERS Safety Report 7625723-2 (Version None)
Quarter: 2011Q3

REPORT INFORMATION
  Report Type: 
  Country: None (occurrence: None)
  Receive Date: 20110721
  Receipt Date: 20110718
  Transmission Date: 20111222
  Serious: Yes (Other)
  Sender: FDA-Public Use
  Company Number: PL-BRISTOL-MYERS SQUIBB COMPANY-15767726

PATIENT
  Age: 20 Year
  Sex: Male

DRUGS (4)
  1. VALPROATE SODIUM [Suspect]
  2. SSRI [Concomitant]
  3. ABILIFY [Suspect]
     Indication: MENTAL DISORDER
     Dosage: 7.5MG/D
  4. TRAZODONE HCL [Suspect]

REACTIONS (7)
  - DRUG INEFFECTIVE [None]
  - INSOMNIA [None]
  - NASOPHARYNGITIS [None]
  - HYPERTHYROIDISM [None]
  - AKATHISIA [None]
  - RESPIRATORY TRACT INFECTION [None]
  - NERVOUSNESS [None]
